FAERS Safety Report 4431936-3 (Version None)
Quarter: 2004Q3

REPORT INFORMATION
  Report Type: 
  Country: None (occurrence: None)
  Receive Date: 20040819
  Receipt Date: 20040806
  Transmission Date: 20050211
  Serious: Yes (Hospitalization)
  Sender: FDA-Public Use
  Company Number: 2004227160NL

PATIENT
  Age: 11 Year
  Sex: Female

DRUGS (2)
  1. TRELSTAR DEPOT [Suspect]
     Indication: PRECOCIOUS PUBERTY
     Dosage: 3.75MG/MONTH, INTRAMUSCULAR
     Route: 030
  2. BUSERELIN(BUSERELIN) [Suspect]
     Indication: PRECOCIOUS PUBERTY
     Dosage: 3.75MG/MONTH, INTRAMUSCULAR
     Route: 030

REACTIONS (2)
  - ARTHRALGIA [None]
  - SLIPPED FEMORAL EPIPHYSIS [None]
